FAERS Safety Report 4775238-4 (Version None)
Quarter: 2005Q3

REPORT INFORMATION
  Report Type: 
  Country: None (occurrence: None)
  Receive Date: 20050921
  Receipt Date: 20050729
  Transmission Date: 20060218
  Serious: Yes (Hospitalization)
  Sender: FDA-Public Use
  Company Number: US-MERCK-0508USA00461

PATIENT
  Age: 62 Year
  Sex: Female
  Weight: 68 kg

DRUGS (6)
  1. VIOXX [Suspect]
     Indication: OSTEOARTHRITIS
     Route: 048
     Dates: start: 20000101, end: 20040201
  2. NORVASC [Concomitant]
     Route: 065
  3. AXID [Concomitant]
     Route: 065
  4. ASCORBIC ACID [Concomitant]
     Route: 065
  5. CALTRATE [Concomitant]
     Route: 065
  6. TUSSIONEX [Concomitant]
     Route: 065

REACTIONS (7)
  - CEREBROVASCULAR ACCIDENT [None]
  - CHEMOTHERAPY [None]
  - COLON CANCER [None]
  - COLON OPERATION [None]
  - DEPRESSION [None]
  - GALLBLADDER OPERATION [None]
  - GASTROOESOPHAGEAL REFLUX DISEASE [None]
